FAERS Safety Report 15729992 (Version 1)
Quarter: 2018Q4

REPORT INFORMATION
  Report Type: Report from Study
  Country: IT (occurrence: IT)
  Receive Date: 20181217
  Receipt Date: 20181217
  Transmission Date: 20190205
  Serious: Yes (Hospitalization)
  Sender: FDA-Public Use
  Company Number: IT-JNJFOC-20181215212

PATIENT
  Age: 80 Year
  Sex: Male

DRUGS (6)
  1. XARELTO [Suspect]
     Active Substance: RIVAROXABAN
     Indication: PRODUCT USED FOR UNKNOWN INDICATION
     Route: 048
  2. BLOPRESS [Concomitant]
     Active Substance: CANDESARTAN CILEXETIL
     Route: 065
  3. ESIDREX [Concomitant]
     Active Substance: HYDROCHLOROTHIAZIDE
     Route: 065
  4. TORVAST [Concomitant]
     Active Substance: ATORVASTATIN
     Route: 065
  5. OMEPRAZEN [Concomitant]
     Active Substance: OMEPRAZOLE
     Route: 065
  6. KANRENOL [Concomitant]
     Active Substance: CANRENOATE POTASSIUM
     Route: 065

REACTIONS (1)
  - Anaemia [Unknown]

NARRATIVE: CASE EVENT DATE: 20181108
